FAERS Safety Report 6569887-0 (Version None)
Quarter: 2010Q1

REPORT INFORMATION
  Report Type: 
  Country: None (occurrence: None)
  Receive Date: 20100204
  Receipt Date: 20100126
  Transmission Date: 20100710
  Serious: Yes (Hospitalization, Other)
  Sender: FDA-Public Use
  Company Number: US-AMGEN-QUU384412

PATIENT
  Sex: Male

DRUGS (1)
  1. ENBREL [Suspect]
     Indication: RHEUMATOID ARTHRITIS
     Route: 058
     Dates: start: 20000101

REACTIONS (12)
  - BRONCHITIS [None]
  - FACIAL PALSY [None]
  - HERPES ZOSTER [None]
  - HYPERTENSION [None]
  - IMPAIRED HEALING [None]
  - MUSCULOSKELETAL STIFFNESS [None]
  - NERVOUS SYSTEM DISORDER [None]
  - OSTEOARTHRITIS [None]
  - PNEUMONIA [None]
  - RHEUMATOID ARTHRITIS [None]
  - SCRATCH [None]
  - WEIGHT DECREASED [None]
